FAERS Safety Report 23968553 (Version 1)
Quarter: 2024Q2

REPORT INFORMATION
  Report Type: Spontaneous
  Country: ET (occurrence: ET)
  Receive Date: 20240612
  Receipt Date: 20240612
  Transmission Date: 20240716
  Serious: Yes (Other)
  Sender: FDA-Public Use
  Company Number: ET-002147023-NVSC2024ET123296

PATIENT
  Sex: Female

DRUGS (1)
  1. GLIVEC [Suspect]
     Active Substance: IMATINIB MESYLATE
     Indication: Chronic myeloid leukaemia
     Dosage: 400 MG (4 X 100MG)
     Route: 065

REACTIONS (3)
  - Treatment failure [Unknown]
  - Blast cell crisis [Unknown]
  - Platelet count increased [Unknown]
